FAERS Safety Report 8619204-7 (Version None)
Quarter: 2012Q3

REPORT INFORMATION
  Report Type: 
  Country: None (occurrence: None)
  Receive Date: 20120824
  Receipt Date: 20120808
  Transmission Date: 20120928
  Serious: Yes (Hospitalization)
  Sender: FDA-Public Use
  Company Number: US-009507513-1208USA008941

PATIENT

DRUGS (12)
  1. GABAPENTIN [Concomitant]
     Dosage: 600 MG, QH
     Route: 048
  2. ARMODAFINIL [Concomitant]
     Dosage: 100 MG, QD
     Route: 048
  3. ASPIRIN [Suspect]
  4. SYNTHROID [Concomitant]
     Dosage: 50 MICROGRAM, QD
     Route: 048
  5. PREDNISONE TAB [Concomitant]
     Dosage: 20 MG, BID
     Route: 048
  6. RIDAFOROLIMUS [Suspect]
     Indication: RENAL CELL CARCINOMA
     Dosage: 10 MG, QD X 5 DAYS Q WK
     Route: 048
     Dates: start: 20120424, end: 20120624
  7. MK-0683 [Suspect]
     Indication: RENAL CELL CARCINOMA
     Dosage: 100 MG,  X 3 DAYS Q WK
     Route: 048
     Dates: start: 20120424, end: 20120622
  8. ENALAPRIL MALEATE [Concomitant]
     Dosage: 40 MG, QD
     Route: 048
  9. BYSTOLIC [Concomitant]
     Dosage: 10 MG, QD
     Route: 048
  10. ZOCOR [Concomitant]
     Dosage: 20 MG, QD
     Route: 048
  11. LOVENOX [Suspect]
     Dosage: 80 MG, BID
     Route: 058
  12. NORVASC [Concomitant]
     Dosage: 10 MG, QD
     Route: 048

REACTIONS (4)
  - PNEUMONITIS [None]
  - DEEP VEIN THROMBOSIS [None]
  - HAEMORRHAGE SUBCUTANEOUS [None]
  - MUSCLE HAEMORRHAGE [None]
